FAERS Safety Report 5347821-9 (Version None)
Quarter: 2007Q2

REPORT INFORMATION
  Report Type: 
  Country: None (occurrence: None)
  Receive Date: 20070516
  Receipt Date: 20070306
  Transmission Date: 20071010
  Serious: Yes (Hospitalization)
  Sender: FDA-Public Use
  Company Number: E2090-00193-SPO-US

PATIENT
  Age: 40 Year
  Sex: Male

DRUGS (3)
  1. ZONEGRAN [Suspect]
     Indication: EPILEPSY
     Dosage: 300 MG, 1 IN 1 D, ORAL
     Route: 048
     Dates: start: 20060101, end: 20070101
  2. COZAAR [Concomitant]
  3. CRESTOR [Concomitant]

REACTIONS (4)
  - DECREASED APPETITE [None]
  - PARANOIA [None]
  - SLEEP DISORDER [None]
  - WEIGHT DECREASED [None]
